FAERS Safety Report 4291481-5 (Version None)
Quarter: 2004Q1

REPORT INFORMATION
  Report Type: 
  Country: None (occurrence: None)
  Receive Date: 20040126
  Receipt Date: 20030926
  Transmission Date: 20041129
  Serious: No
  Sender: FDA-Public Use
  Company Number: USA030947208

PATIENT
  Age: 83 Year
  Sex: Female

DRUGS (3)
  1. FORTEO [Suspect]
     Dates: start: 20030701
  2. BLOOD PRESSURE PILLS [Concomitant]
  3. HEART PILLS [Concomitant]

REACTIONS (2)
  - INJECTION SITE ERYTHEMA [None]
  - PRURITUS GENERALISED [None]
